FAERS Safety Report 9070983 (Version 1)
Quarter: 2013Q1

REPORT INFORMATION
  Report Type: Report from Study
  Country: JP (occurrence: JP)
  Receive Date: 20130129
  Receipt Date: 20130129
  Transmission Date: 20140127
  Serious: Yes (Other)
  Sender: FDA-Public Use
  Company Number: JP-GLAXOSMITHKLINE-B0860812A

PATIENT
  Age: 53 None
  Sex: Male
  Weight: 62 kg

DRUGS (3)
  1. ARIXTRA [Suspect]
     Indication: THROMBOSIS PROPHYLAXIS
     Dosage: 2.5MG PER DAY
     Route: 058
     Dates: start: 20100318, end: 20100329
  2. BFLUID [Concomitant]
     Indication: COLON CANCER
     Route: 042
  3. CEFMETAZON [Concomitant]
     Indication: COLON CANCER

REACTIONS (3)
  - Portal vein thrombosis [Recovered/Resolved]
  - Hepatic function abnormal [Recovered/Resolved]
  - Hyperamylasaemia [Recovered/Resolved]
